FAERS Safety Report 7522314-9 (Version None)
Quarter: 2011Q2

REPORT INFORMATION
  Report Type: 
  Country: None (occurrence: None)
  Receive Date: 20110603
  Receipt Date: 20110520
  Transmission Date: 20111010
  Serious: Yes (Other)
  Sender: FDA-Public Use
  Company Number: PHHY2011BR46102

PATIENT
  Sex: Female

DRUGS (3)
  1. ANALGESICS [Concomitant]
  2. DIOVAN [Suspect]
     Indication: HYPERTENSION
     Dosage: 160 MG, 1 TABLET IN THE MORNING
     Route: 048
  3. DIOVAN [Suspect]
     Dosage: UNK
     Dates: start: 20110201

REACTIONS (2)
  - GASTROINTESTINAL NEOPLASM [None]
  - BLOOD PRESSURE INCREASED [None]
